FAERS Safety Report 7912844-X (Version None)
Quarter: 2011Q4

REPORT INFORMATION
  Report Type: 
  Country: None (occurrence: None)
  Receive Date: 20111114
  Receipt Date: 20111019
  Transmission Date: 20120403
  Serious: Yes (Other)
  Sender: FDA-Public Use
  Company Number: JP-GLAXOSMITHKLINE-B0757754A

PATIENT
  Sex: Female

DRUGS (3)
  1. OLOPATADINE HCL [Concomitant]
     Indication: URTICARIA
     Dosage: 10MG PER DAY
     Route: 048
     Dates: start: 20110615
  2. DEPAS [Concomitant]
     Indication: INSOMNIA
     Dosage: .5MG PER DAY
     Route: 048
     Dates: start: 20110615
  3. FLUTICASONE PROPIONATE/SALMETEROL [Suspect]
     Indication: ASTHMA
     Dosage: 500MCG PER DAY
     Route: 055
     Dates: start: 20110615, end: 20110801

REACTIONS (7)
  - SENSATION OF FOREIGN BODY [None]
  - CHEST DISCOMFORT [None]
  - DYSPHAGIA [None]
  - DECREASED APPETITE [None]
  - OROPHARYNGEAL DISCOMFORT [None]
  - THYROID CANCER [None]
  - OESOPHAGEAL CARCINOMA [None]
